FAERS Safety Report 20814407 (Version 1)
Quarter: 2022Q2

REPORT INFORMATION
  Report Type: Spontaneous
  Country: None (occurrence: US)
  Receive Date: 20220511
  Receipt Date: 20220511
  Transmission Date: 20220721
  Serious: Yes (Hospitalization)
  Sender: FDA-Public Use
  Company Number: US-Empower Pharmacy-2128679

PATIENT
  Sex: Female

DRUGS (4)
  1. ARGININE HYDROCHLORIDE [Suspect]
     Active Substance: ARGININE HYDROCHLORIDE
     Route: 042
     Dates: start: 20220323, end: 20220323
  2. Ascorbic Acid Preservative Free 500mg/mL [Concomitant]
     Route: 042
     Dates: start: 20220323, end: 20220323
  3. Glutathione Preservative Free 200mg/mL [Concomitant]
     Route: 042
     Dates: start: 20220323, end: 20220323
  4. Magnesium Chloride 200mg/mL [Concomitant]
     Route: 042
     Dates: start: 20220323, end: 20220323

REACTIONS (2)
  - Vomiting [Recovered/Resolved]
  - Dehydration [Recovered/Resolved]

NARRATIVE: CASE EVENT DATE: 20220329
